FAERS Safety Report 16089708 (Version 1)
Quarter: 2019Q1

REPORT INFORMATION
  Report Type: Spontaneous
  Country: DE (occurrence: DE)
  Receive Date: 20190319
  Receipt Date: 20190319
  Transmission Date: 20190418
  Serious: Yes (Hospitalization, Other)
  Sender: FDA-Public Use
  Company Number: DE-MYLANLABS-2019M1024006

PATIENT
  Age: 80 Year
  Sex: Female

DRUGS (14)
  1. RISPERIDONE. [Suspect]
     Active Substance: RISPERIDONE
     Dosage: 0.5 MILLIGRAM, QD
     Route: 048
     Dates: start: 20180222, end: 20180225
  2. PIPAMPERON [Suspect]
     Active Substance: PIPAMPERONE HYDROCHLORIDE
     Indication: PRODUCT USED FOR UNKNOWN INDICATION
     Dosage: 60 MILLIGRAM, QD (B.A.W.)
     Route: 048
     Dates: start: 20180213
  3. SIMVASTATIN. [Concomitant]
     Active Substance: SIMVASTATIN
     Dosage: SEIT MONATEN
     Route: 048
     Dates: end: 20180221
  4. BRIMONIDINE [Concomitant]
     Active Substance: BRIMONIDINE TARTRATE
     Dosage: SEIT MONATEN - B.A.W.
     Route: 047
  5. PREDNIFLUID [Concomitant]
     Dosage: SEIT MONATEN  - B.A.W.
     Route: 047
  6. MIRTAZAPIN [Concomitant]
     Active Substance: MIRTAZAPINE
     Dosage: B.A.W.
     Route: 048
     Dates: start: 20180213
  7. DORZOLAMIDE W/TIMOLOL [Concomitant]
     Active Substance: DORZOLAMIDE HYDROCHLORIDE\TIMOLOL MALEATE
     Dosage: SEIT MONATEN
     Route: 047
     Dates: end: 20180221
  8. LANTUS [Concomitant]
     Active Substance: INSULIN GLARGINE
     Dosage: SEIT MONATEN
     Route: 058
  9. RISPERIDONE. [Suspect]
     Active Substance: RISPERIDONE
     Indication: PRODUCT USED FOR UNKNOWN INDICATION
     Dosage: 0 - 2.5 MG
     Route: 048
     Dates: start: 20161201, end: 20180212
  10. ENALAPRIL [Concomitant]
     Active Substance: ENALAPRIL
     Dosage: B.A.W.
     Route: 048
     Dates: start: 20180221
  11. RISPERIDONE. [Suspect]
     Active Substance: RISPERIDONE
     Dosage: 1 MILLIGRAM, QD
     Route: 048
     Dates: start: 20180213, end: 20180221
  12. ACTRAPID [Concomitant]
     Active Substance: INSULIN HUMAN
     Dosage: SEIT MONATEN; B.A.W. NACH SCHEMA IE
     Route: 058
  13. ENALAPRIL [Concomitant]
     Active Substance: ENALAPRIL
     Dosage: SEIT MONATEN
     Route: 048
     Dates: end: 20180220
  14. ELIQUIS [Concomitant]
     Active Substance: APIXABAN
     Dosage: SEIT MONATEN - B.A.W.
     Route: 048

REACTIONS (1)
  - Rabbit syndrome [Recovering/Resolving]

NARRATIVE: CASE EVENT DATE: 20180221
